FAERS Safety Report 9717031 (Version 2)
Quarter: 2015Q3

REPORT INFORMATION
  Report Type: Spontaneous
  Country: US (occurrence: US)
  Receive Date: 20131127
  Receipt Date: 20150804
  Transmission Date: 20151125
  Serious: No
  Sender: FDA-Public Use
  Company Number: US-GILEAD-2009-0020669

PATIENT
  Age: 52 Year
  Sex: Male
  Weight: 119.29 kg

DRUGS (15)
  1. PROTONIX [Concomitant]
     Active Substance: PANTOPRAZOLE SODIUM
  2. ADVAIR HFA [Concomitant]
     Active Substance: FLUTICASONE PROPIONATE\SALMETEROL XINAFOATE
  3. LETAIRIS [Suspect]
     Active Substance: AMBRISENTAN
     Indication: PULMONARY ARTERIAL HYPERTENSION
     Route: 048
     Dates: start: 20090218
  4. BENICAR [Concomitant]
     Active Substance: OLMESARTAN MEDOXOMIL
  5. NITROQUICK [Concomitant]
     Active Substance: NITROGLYCERIN
  6. ALBUTEROL. [Concomitant]
     Active Substance: ALBUTEROL
  7. PROVENTIL [Concomitant]
     Active Substance: ALBUTEROL
  8. LYRICA [Concomitant]
     Active Substance: PREGABALIN
  9. FLOMAX [Concomitant]
     Active Substance: TAMSULOSIN HYDROCHLORIDE
  10. ATROPINE. [Concomitant]
     Active Substance: ATROPINE
  11. HORIZON NASAL [Concomitant]
  12. MUCINEX [Concomitant]
     Active Substance: GUAIFENESIN
  13. RANEXA [Concomitant]
     Active Substance: RANOLAZINE
  14. LIPITOR [Concomitant]
     Active Substance: ATORVASTATIN CALCIUM
  15. AMPICILLIN [Concomitant]
     Active Substance: AMPICILLIN

REACTIONS (1)
  - Oedema peripheral [Unknown]
